FAERS Safety Report 15908983 (Version 1)
Quarter: 2019Q1

REPORT INFORMATION
  Report Type: Spontaneous
  Country: DK (occurrence: DK)
  Receive Date: 20190204
  Receipt Date: 20190204
  Transmission Date: 20190417
  Serious: Yes (Hospitalization)
  Sender: FDA-Public Use
  Company Number: DK-PFIZER INC-2019043419

PATIENT
  Age: 53 Year
  Sex: Female

DRUGS (15)
  1. FLUCONAZOLE. [Concomitant]
     Active Substance: FLUCONAZOLE
     Indication: FUNGAL INFECTION
     Dosage: 100 MG, 1X/DAY
     Route: 048
     Dates: start: 20170828
  2. SALAZOPYRIN EN-TABS [Suspect]
     Active Substance: SULFASALAZINE
     Indication: RHEUMATOID ARTHRITIS
     Dosage: 3000 MG, 1X/DAY
     Route: 048
     Dates: start: 20161109
  3. PREDNISOLONE. [Concomitant]
     Active Substance: PREDNISOLONE
     Indication: BLOOD CORTICOTROPHIN
     Dosage: 7.5 MG, 1X/DAY
     Route: 048
     Dates: start: 20180223
  4. MELATONIN [Concomitant]
     Active Substance: MELATONIN
     Indication: INSOMNIA
     Dosage: 3 MG, 1X/DAY
     Route: 048
     Dates: start: 20170130, end: 20171211
  5. PARACETAMOL [Concomitant]
     Active Substance: ACETAMINOPHEN
     Indication: PAIN
     Dosage: 3000 MG, 1X/DAY
     Route: 048
     Dates: start: 20120727
  6. DIXARIT [Concomitant]
     Active Substance: CLONIDINE HYDROCHLORIDE
     Indication: HOT FLUSH
     Dosage: 100 UG, 1X/DAY
     Route: 048
     Dates: start: 20150407
  7. GABAPENTIN. [Concomitant]
     Active Substance: GABAPENTIN
     Indication: PAIN
     Dosage: 900 MG, 1X/DAY
     Route: 048
     Dates: start: 20160909
  8. PANTOPRAZOLE SODIUM SESQUIHYDRATE [Concomitant]
     Active Substance: PANTOPRAZOLE SODIUM
     Indication: GASTRIC ULCER
     Dosage: 40 MG, 1X/DAY
     Route: 048
     Dates: start: 20120727
  9. AMITRIPTYLINE [Concomitant]
     Active Substance: AMITRIPTYLINE
     Indication: PAIN
     Dosage: 50 MG, 1X/DAY
     Route: 048
     Dates: start: 20150106
  10. CENTYL MED KALIUMKLORID [Concomitant]
     Active Substance: BENDROFLUMETHIAZIDE\POTASSIUM CHLORIDE
     Indication: DIURETIC THERAPY
     Dosage: 1 DF, 1X/DAY
     Route: 048
     Dates: start: 20160512
  11. METHADONE [Concomitant]
     Active Substance: METHADONE HYDROCHLORIDE
     Indication: PAIN
     Dosage: 30 MG, 1X/DAY
     Route: 048
     Dates: start: 20161123
  12. CALCIUM + VIT D [Concomitant]
     Active Substance: CALCIUM\VITAMIN D
     Indication: VITAMIN SUPPLEMENTATION
     Dosage: 2 DF, 1X/DAY
     Route: 048
     Dates: start: 20160512
  13. FOLIC ACID. [Concomitant]
     Active Substance: FOLIC ACID
     Dosage: 5 MG, WEEKLY
     Route: 048
     Dates: start: 20160126
  14. SIMVASTATIN. [Concomitant]
     Active Substance: SIMVASTATIN
     Indication: HYPERCHOLESTEROLAEMIA
     Dosage: 40 MG, 1X/DAY
     Route: 048
     Dates: start: 20160512
  15. DULOXETINE. [Concomitant]
     Active Substance: DULOXETINE
     Indication: DEPRESSION
     Dosage: 120 MG, 1X/DAY
     Route: 048
     Dates: start: 20170427

REACTIONS (5)
  - Epistaxis [Unknown]
  - Rash [Unknown]
  - Gingival bleeding [Not Recovered/Not Resolved]
  - Wound [Unknown]
  - Leukopenia [Unknown]

NARRATIVE: CASE EVENT DATE: 201812
